FAERS Safety Report 13078626 (Version 1)
Quarter: 2017Q1

REPORT INFORMATION
  Report Type: Spontaneous
  Country: US (occurrence: US)
  Receive Date: 20170102
  Receipt Date: 20170102
  Transmission Date: 20170428
  Serious: No
  Sender: FDA-Public Use
  Company Number: US-009507513-1701USA000805

PATIENT
  Age: 9 Year
  Sex: Male

DRUGS (1)
  1. TEMODAR [Suspect]
     Active Substance: TEMOZOLOMIDE
     Indication: GLIOBLASTOMA MULTIFORME
     Dosage: 5-WEEK COURSE STARTING ON POSTOPERATIVE DAY 20

REACTIONS (2)
  - Drug administered to patient of inappropriate age [Unknown]
  - Product use issue [Unknown]
